FAERS Safety Report 9003708 (Version 1)
Quarter: 2013Q1

REPORT INFORMATION
  Report Type: Spontaneous
  Country: US (occurrence: US)
  Receive Date: 20130108
  Receipt Date: 20130108
  Transmission Date: 20140127
  Serious: No
  Sender: FDA-Public Use
  Company Number: US-GLAXOSMITHKLINE-A0964366A

PATIENT
  Age: 59 Year
  Sex: Male

DRUGS (11)
  1. LOVAZA [Suspect]
     Indication: BLOOD CHOLESTEROL INCREASED
     Dosage: 2CAP TWICE PER DAY
     Route: 048
  2. NORCO [Concomitant]
  3. PLAVIX [Concomitant]
  4. LISINOPRIL [Concomitant]
  5. IRON [Concomitant]
  6. MVI [Concomitant]
  7. ANTACID [Concomitant]
     Route: 048
  8. DIGOXIN [Concomitant]
  9. SIMVASTATIN [Concomitant]
  10. METOPROLOL [Concomitant]
  11. VANCOMYCIN [Concomitant]
     Route: 042

REACTIONS (3)
  - Eructation [Not Recovered/Not Resolved]
  - Nausea [Unknown]
  - Product quality issue [Unknown]
